FAERS Safety Report 6294569-2 (Version None)
Quarter: 2009Q3

REPORT INFORMATION
  Report Type: 
  Country: None (occurrence: None)
  Receive Date: 20090803
  Receipt Date: 20090724
  Transmission Date: 20100115
  Serious: Yes (Other)
  Sender: FDA-Public Use
  Company Number: US-PURDUE-USA-2009-0039287

PATIENT
  Age: 48 Year
  Sex: Male

DRUGS (1)
  1. OXYCODONE HYDROCHLORIDE [Suspect]
     Indication: DRUG ABUSE
     Route: 048

REACTIONS (3)
  - BACK PAIN [None]
  - INTENTIONAL OVERDOSE [None]
  - SUICIDAL IDEATION [None]
